FAERS Safety Report 10408413 (Version 1)
Quarter: 2014Q3

REPORT INFORMATION
  Report Type: Spontaneous
  Country: US (occurrence: None)
  Receive Date: 20140825
  Receipt Date: 20140825
  Transmission Date: 20150326
  Serious: No
  Sender: FDA-Public Use
  Company Number: None

PATIENT
  Age: 72 Year
  Sex: Female
  Weight: 83.24 kg

DRUGS (7)
  1. MULTI VITAMINS [Concomitant]
  2. VIT. D, FOLIC ACID, VIT. B - COMPLEX [Concomitant]
     Active Substance: FOLIC ACID\VITAMINS
  3. FELODIPINE. [Concomitant]
     Active Substance: FELODIPINE
  4. HYDROCHLOROTHIAZIDE 25MG (1 X DAY) [Suspect]
     Active Substance: HYDROCHLOROTHIAZIDE
     Indication: HYPERTENSION
     Dosage: 1 TABLET EVERY DAY ONCE DAILY BY MOUTH
     Route: 048
     Dates: start: 20140725, end: 20140808
  5. LORATADINE. [Concomitant]
     Active Substance: LORATADINE
  6. METFORMIN [Concomitant]
     Active Substance: METFORMIN HYDROCHLORIDE
  7. OMEPRAZOLE. [Concomitant]
     Active Substance: OMEPRAZOLE

REACTIONS (6)
  - Abdominal pain [None]
  - Eye pain [None]
  - Frequent bowel movements [None]
  - Dizziness [None]
  - Asthenia [None]
  - Decreased appetite [None]

NARRATIVE: CASE EVENT DATE: 20140808
